FAERS Safety Report 5566677-2 (Version None)
Quarter: 2007Q4

REPORT INFORMATION
  Report Type: 
  Country: None (occurrence: None)
  Receive Date: 20071219
  Receipt Date: 20071210
  Transmission Date: 20080405
  Serious: Yes (Hospitalization)
  Sender: FDA-Public Use
  Company Number: US-TYCO HEALTHCARE/MALLINCKRODT-T200701479

PATIENT

DRUGS (2)
  1. OXYCODONE HCL [Suspect]
     Indication: BACK PAIN
     Dosage: 10 MG (2 TABLETS), Q4-6H
     Route: 048
     Dates: start: 19980101
  2. MS CONTIN [Suspect]
     Indication: BACK PAIN
     Dosage: 60 MG (2 TABLETS), TID Q8H
     Route: 048
     Dates: start: 19970101, end: 20070201

REACTIONS (8)
  - DENTAL CARIES [None]
  - DETOXIFICATION [None]
  - MENTAL DISORDER [None]
  - PURULENT DISCHARGE [None]
  - SUICIDAL IDEATION [None]
  - TOOTH LOSS [None]
  - VERTIGO [None]
  - VOMITING [None]
